FAERS Safety Report 24106646 (Version 1)
Quarter: 2024Q3

REPORT INFORMATION
  Report Type: Spontaneous
  Country: FR (occurrence: FR)
  Receive Date: 20240717
  Receipt Date: 20240717
  Transmission Date: 20241017
  Serious: Yes (Other)
  Sender: TEVA
  Company Number: None

PATIENT
  Age: 70 Year
  Sex: Female

DRUGS (2)
  1. IRINOTECAN [Suspect]
     Active Substance: IRINOTECAN
     Indication: Gastrointestinal carcinoma in situ
     Dosage: TIME INTERVAL: CYCLICAL
     Route: 042
     Dates: start: 20210317
  2. OXALIPLATIN [Suspect]
     Active Substance: OXALIPLATIN
     Indication: Gastrointestinal carcinoma in situ
     Dosage: TIME INTERVAL: CYCLICAL
     Route: 042
     Dates: start: 20210317

REACTIONS (1)
  - Larynx irritation [Recovered/Resolved]

NARRATIVE: CASE EVENT DATE: 20210317
